FAERS Safety Report 8225072-8 (Version None)
Quarter: 2012Q1

REPORT INFORMATION
  Report Type: 
  Country: None (occurrence: None)
  Receive Date: 20120307
  Receipt Date: 20090813
  Transmission Date: 20120608
  Serious: No
  Sender: FDA-Public Use
  Company Number: PHEH2009US09562

PATIENT
  Age: 63 Year
  Sex: Male
  Weight: 90.7 kg

DRUGS (1)
  1. AFINITOR [Suspect]
     Indication: RENAL CELL CARCINOMA
     Dosage: 10 MG , QD, ORAL
     Route: 048
     Dates: start: 20090731, end: 20090805

REACTIONS (5)
  - FATIGUE [None]
  - FEELING ABNORMAL [None]
  - TREMOR [None]
  - HEADACHE [None]
  - CHILLS [None]
